FAERS Safety Report 19512184 (Version 1)
Quarter: 2021Q3

REPORT INFORMATION
  Report Type: Report from Study
  Country: CN (occurrence: CN)
  Receive Date: 20210709
  Receipt Date: 20210709
  Transmission Date: 20211014
  Serious: Yes (Other)
  Sender: FDA-Public Use
  Company Number: CN-PFIZER INC-2021800499

PATIENT
  Age: 30 Year
  Sex: Male
  Weight: 63 kg

DRUGS (3)
  1. AMIKACIN. [Suspect]
     Active Substance: AMIKACIN
     Indication: PULMONARY TUBERCULOSIS
     Dosage: UNK
  2. DELTYBA [Suspect]
     Active Substance: DELAMANID
     Indication: PULMONARY TUBERCULOSIS
     Dosage: 100 MG, 2X/DAY
     Route: 048
     Dates: start: 20200814
  3. LINEZOLID. [Suspect]
     Active Substance: LINEZOLID
     Indication: PULMONARY TUBERCULOSIS
     Dosage: UNK

REACTIONS (4)
  - Vestibular disorder [Recovering/Resolving]
  - Upper respiratory tract infection [Recovered/Resolved]
  - Optic neuritis [Unknown]
  - Hypokalaemia [Recovered/Resolved]

NARRATIVE: CASE EVENT DATE: 20200819
